FAERS Safety Report 4366422-2 (Version None)
Quarter: 2004Q2

REPORT INFORMATION
  Report Type: 
  Country: None (occurrence: None)
  Receive Date: 20040527
  Receipt Date: 20040317
  Transmission Date: 20050107
  Serious: No
  Sender: FDA-Public Use
  Company Number: US-BRISTOL-MYERS SQUIBB COMPANY-12536538

PATIENT
  Sex: Male

DRUGS (3)
  1. ERBITUX [Suspect]
     Dates: start: 20040316, end: 20040316
  2. BENADRYL [Concomitant]
     Indication: PREMEDICATION
  3. CPT-11 [Concomitant]

REACTIONS (2)
  - ACNE [None]
  - PRURITUS [None]
